FAERS Safety Report 6736115-2 (Version None)
Quarter: 2010Q2

REPORT INFORMATION
  Report Type: 
  Country: None (occurrence: None)
  Receive Date: 20100521
  Receipt Date: 20100506
  Transmission Date: 20101027
  Serious: Yes (Other)
  Sender: FDA-Public Use
  Company Number: JP-PFIZER INC-2010063807

PATIENT
  Age: 51 Year
  Sex: Female

DRUGS (3)
  1. EPIRUBICIN HYDROCHLORIDE [Suspect]
     Indication: METASTASES TO LIVER
     Dosage: 75 MG/M2, DAILY, CYCLIC
     Route: 042
     Dates: start: 20051001
  2. CYCLOPHOSPHAMIDE [Suspect]
     Dosage: 500 MG/M2, UNK
     Dates: start: 20051001
  3. FLUOROURACIL [Suspect]
     Dosage: 500 MG/M2, UNK
     Dates: start: 20051001

REACTIONS (1)
  - FATIGUE [None]
